FAERS Safety Report 19391276 (Version 1)
Quarter: 2021Q2

REPORT INFORMATION
  Report Type: Spontaneous
  Country: US (occurrence: US)
  Receive Date: 20210609
  Receipt Date: 20210609
  Transmission Date: 20210717
  Serious: Yes (Other)
  Sender: FDA-Public Use
  Company Number: US-DRREDDYS-USA/USA/21/0136252

PATIENT
  Age: 47 Year
  Sex: Female
  Weight: 76.5 kg

DRUGS (3)
  1. FEXOFENADINE HCL 60 MG AND PSEUDOEPHEDRINE HCL ER 120 MG [Suspect]
     Active Substance: FEXOFENADINE HYDROCHLORIDE\PSEUDOEPHEDRINE HYDROCHLORIDE
     Indication: SINUS CONGESTION
     Dosage: 60MG/120MG EVERY 12 HOURS
     Dates: start: 20210531, end: 20210531
  2. ZOLOFT [Concomitant]
     Active Substance: SERTRALINE HYDROCHLORIDE
     Indication: PRODUCT USED FOR UNKNOWN INDICATION
  3. FEXOFENADINE HCL 60 MG AND PSEUDOEPHEDRINE HCL ER 120 MG [Suspect]
     Active Substance: FEXOFENADINE HYDROCHLORIDE\PSEUDOEPHEDRINE HYDROCHLORIDE
     Dates: start: 20210531, end: 20210531

REACTIONS (12)
  - Sensory loss [Recovered/Resolved]
  - Dyspnoea [Recovered/Resolved]
  - Muscle twitching [Recovered/Resolved]
  - Disorientation [Recovered/Resolved]
  - Feeling abnormal [Recovered/Resolved]
  - Pupil fixed [Recovered/Resolved]
  - Heart rate increased [Recovered/Resolved]
  - Adverse reaction [Recovered/Resolved]
  - Paraesthesia oral [Recovered/Resolved]
  - Blood pressure increased [Recovered/Resolved]
  - Seizure [Recovered/Resolved]
  - Product solubility abnormal [Recovered/Resolved]
